FAERS Safety Report 5077451-8 (Version None)
Quarter: 2006Q3

REPORT INFORMATION
  Report Type: 
  Country: None (occurrence: None)
  Receive Date: 20060810
  Receipt Date: 20060302
  Transmission Date: 20061208
  Serious: No
  Sender: FDA-Public Use
  Company Number: US-GLAXOSMITHKLINE-A0595884A

PATIENT
  Age: 34 Year
  Sex: Male

DRUGS (6)
  1. PAXIL [Suspect]
     Indication: DEPRESSION
     Route: 048
     Dates: start: 20020616, end: 20041101
  2. IMITREX [Suspect]
     Indication: MIGRAINE
     Route: 065
     Dates: start: 20020620
  3. INSULIN [Concomitant]
  4. SYNTHROID [Concomitant]
  5. XANAX [Concomitant]
  6. ALTACE [Concomitant]

REACTIONS (2)
  - DRUG INEFFECTIVE [None]
  - MIGRAINE [None]
